FAERS Safety Report 15492161 (Version 1)
Quarter: 2018Q4

REPORT INFORMATION
  Report Type: Spontaneous
  Country: US (occurrence: US)
  Receive Date: 20181011
  Receipt Date: 20181011
  Transmission Date: 20190205
  Serious: Yes (Disabling)
  Sender: FDA-Public Use
  Company Number: None

PATIENT
  Age: 65 Year
  Sex: Female
  Weight: 65.25 kg

DRUGS (22)
  1. ANASTROZOLE. [Suspect]
     Active Substance: ANASTROZOLE
     Indication: ANTIOESTROGEN THERAPY
     Dosage: ?          QUANTITY:1 TABLET(S);?
     Route: 048
     Dates: start: 20161201, end: 20180625
  2. CENTRUM SILVER MULTIVITAMIN FOR WOMEN [Concomitant]
  3. PREMARIN CREAM [Concomitant]
  4. DELTA FRACTION TOCOTRIENOLS [Concomitant]
  5. MAGNESIUM GLYCINATE [Concomitant]
     Active Substance: MAGNESIUM GLYCINATE
  6. VITAMIN C [Concomitant]
     Active Substance: ASCORBIC ACID
  7. ZINC PICOLINATE [Concomitant]
     Active Substance: ZINC PICOLINATE
  8. KRILL OIL [Concomitant]
     Active Substance: DIETARY SUPPLEMENT
  9. SYNTHROID [Concomitant]
     Active Substance: LEVOTHYROXINE SODIUM
  10. CALCIUM CITRATE + VITAMIN D [Concomitant]
  11. K2 [Concomitant]
     Active Substance: JWH-018
  12. CLARITIN [Concomitant]
     Active Substance: LORATADINE
  13. VITAMIN B COMPLEX [Concomitant]
     Active Substance: CYANOCOBALAMIN\DEXPANTHENOL\NIACINAMIDE\PYRIDOXINE HYDROCHLORIDE\RIBOFLAVIN 5^-PHOSPHATE SODIUM\THIAMINE HYDROCHLORIDE\VITAMIN B COMPLEX
  14. SYSTANE (HYPROMELLOSE 2910 (4000 MPA.S)) [Concomitant]
     Active Substance: HYPROMELLOSE 2910 (4000 MPA.S)
  15. CINNAMON. [Concomitant]
     Active Substance: CINNAMON
  16. EXEMESTANE. [Concomitant]
     Active Substance: EXEMESTANE
  17. PSEUDOPHEDRINE [Concomitant]
     Active Substance: PSEUDOEPHEDRINE
  18. VITAMIN D3 [Concomitant]
     Active Substance: CHOLECALCIFEROL
  19. VITAMIN E [Concomitant]
     Active Substance: .ALPHA.-TOCOPHEROL
  20. R-ALPHA LIPOIC ACID [Concomitant]
  21. GLUCOSAMINE AND CHONDROITIN [Concomitant]
     Active Substance: CHONDROITIN SULFATE (BOVINE)\GLUCOSAMINE HYDROCHLORIDE
  22. TYLENOL EXTRA STRENGTH [Concomitant]
     Active Substance: ACETAMINOPHEN

REACTIONS (6)
  - Peripheral swelling [None]
  - Rash [None]
  - Lupus-like syndrome [None]
  - Skin burning sensation [None]
  - Antinuclear antibody positive [None]
  - Plantar fasciitis [None]

NARRATIVE: CASE EVENT DATE: 20180430
